FAERS Safety Report 9513837 (Version 2)
Quarter: 2014Q1

REPORT INFORMATION
  Report Type: Report from Study
  Country: JP (occurrence: JP)
  Receive Date: 20130910
  Receipt Date: 20140304
  Transmission Date: 20141002
  Serious: Yes (Death, Life-Threatening)
  Sender: FDA-Public Use
  Company Number: JP-B.I. PHARMACEUTICALS,INC./RIDGEFIELD-2013-BI-27955NB

PATIENT
  Age: 79 Year
  Sex: Female
  Weight: 74.2 kg

DRUGS (6)
  1. TRAZENTA [Suspect]
     Indication: TYPE 2 DIABETES MELLITUS
     Dosage: 5 MG
     Route: 048
     Dates: start: 20121120
  2. KIPRES [Concomitant]
     Dosage: 10 MG
     Route: 048
  3. MUCOSOLVAN [Concomitant]
     Dosage: 45 MG
     Route: 048
  4. THEOLONG [Concomitant]
     Dosage: 400 MG
     Route: 048
  5. ADOAIR [Concomitant]
     Dosage: 1000 MCG
     Route: 055
  6. EDIROL [Concomitant]
     Dosage: 75 MG
     Route: 048

REACTIONS (2)
  - Pancreatic carcinoma [Fatal]
  - Sudden death [Fatal]
